FAERS Safety Report 14537799 (Version 4)
Quarter: 2018Q1

REPORT INFORMATION
  Report Type: Spontaneous
  Country: TW (occurrence: TW)
  Receive Date: 20180215
  Receipt Date: 20180319
  Transmission Date: 20180509
  Serious: Yes (Death, Life-Threatening, Hospitalization, Other)
  Sender: FDA-Public Use
  Company Number: TW-BRISTOL-MYERS SQUIBB COMPANY-BMS-2018-013673

PATIENT
  Age: 61 Year
  Sex: Male
  Weight: 64 kg

DRUGS (2)
  1. OPDIVO [Suspect]
     Active Substance: NIVOLUMAB
     Indication: LUNG ADENOCARCINOMA
     Dosage: 3 MG/KG, Q2WK
     Route: 042
     Dates: start: 20180123, end: 20180206
  2. TAXOTERE [Suspect]
     Active Substance: DOCETAXEL
     Indication: LUNG ADENOCARCINOMA
     Dosage: 71 MG, Q3WK
     Route: 042
     Dates: start: 20180123, end: 20180206

REACTIONS (7)
  - Death [Fatal]
  - Dyspnoea [Unknown]
  - Septic shock [Unknown]
  - Pneumonia [Unknown]
  - Liver function test abnormal [Unknown]
  - Multiple organ dysfunction syndrome [Unknown]
  - Hepatitis B [Unknown]

NARRATIVE: CASE EVENT DATE: 20180220
